FAERS Safety Report 25771722 (Version 1)
Quarter: 2025Q3

REPORT INFORMATION
  Report Type: Spontaneous
  Country: US (occurrence: US)
  Receive Date: 20250908
  Receipt Date: 20250908
  Transmission Date: 20251020
  Serious: No
  Sender: DOMPE FARMACEUTICI
  Company Number: US-FARMAPROD-202505-1591

PATIENT
  Sex: Female
  Weight: 59.47 kg

DRUGS (16)
  1. OXERVATE [Suspect]
     Active Substance: CENEGERMIN-BKBJ
     Indication: Neurotrophic keratopathy
     Route: 047
     Dates: start: 20250502
  2. SYSTANE (HYPROMELLOSE 2910 (4000 MPA.S)) [Concomitant]
     Active Substance: HYPROMELLOSE 2910 (4000 MPA.S)
  3. DICLOFENAC SODIUM [Concomitant]
     Active Substance: DICLOFENAC SODIUM
  4. ZOLOFT [Concomitant]
     Active Substance: SERTRALINE HYDROCHLORIDE
  5. BRIMONIDINE TARTRATE [Concomitant]
     Active Substance: BRIMONIDINE TARTRATE
  6. ACETAMINOPHEN [Concomitant]
     Active Substance: ACETAMINOPHEN
  7. LUMIGAN [Concomitant]
     Active Substance: BIMATOPROST
  8. FAMOTIDINE [Concomitant]
     Active Substance: FAMOTIDINE
  9. ERYTHROMYCIN [Concomitant]
     Active Substance: ERYTHROMYCIN
  10. GABAPENTIN [Concomitant]
     Active Substance: GABAPENTIN
  11. ACAMPROSATE CALCIUM [Concomitant]
     Active Substance: ACAMPROSATE CALCIUM
  12. OFLOXACIN [Concomitant]
     Active Substance: OFLOXACIN
  13. FLUOROMETHOLONE [Concomitant]
     Active Substance: FLUOROMETHOLONE
  14. DICLOFENAC SODIUM [Concomitant]
     Active Substance: DICLOFENAC SODIUM
  15. CYCLOSPORINE [Concomitant]
     Active Substance: CYCLOSPORINE
  16. HYDROCHLOROTHIAZIDE [Concomitant]
     Active Substance: HYDROCHLOROTHIAZIDE

REACTIONS (4)
  - Eye swelling [Unknown]
  - Ocular discomfort [Unknown]
  - Adverse drug reaction [Unknown]
  - Underdose [Unknown]
